FAERS Safety Report 7412574-7 (Version None)
Quarter: 2011Q2

REPORT INFORMATION
  Report Type: 
  Country: None (occurrence: None)
  Receive Date: 20110413
  Receipt Date: 20110405
  Transmission Date: 20111010
  Serious: Yes (Life-Threatening, Hospitalization, Other)
  Sender: FDA-Public Use
  Company Number: US-JNJFOC-20101104462

PATIENT
  Sex: Female

DRUGS (10)
  1. RISPERIDONE [Suspect]
     Route: 048
  2. RISPERIDONE [Suspect]
     Route: 048
  3. MEMANTINE [Suspect]
     Indication: ILL-DEFINED DISORDER
     Route: 065
  4. CITALOPRAM [Suspect]
     Indication: ILL-DEFINED DISORDER
     Route: 065
  5. ATENOLOL [Suspect]
     Indication: ILL-DEFINED DISORDER
     Route: 065
  6. RISPERIDONE [Suspect]
     Indication: AGGRESSION
     Route: 048
  7. DONEPEZIL [Suspect]
     Indication: ILL-DEFINED DISORDER
     Route: 065
  8. LEVOTHYROXINE [Suspect]
     Indication: ILL-DEFINED DISORDER
     Route: 065
  9. SMX-TMP [Suspect]
     Indication: ILL-DEFINED DISORDER
     Dosage: 2 DOUBLE STRENGTH TABLETS/DAY
     Route: 065
  10. ASPIRIN [Suspect]
     Indication: ILL-DEFINED DISORDER
     Route: 065

REACTIONS (1)
  - SEROTONIN SYNDROME [None]
